FAERS Safety Report 13254999 (Version 8)
Quarter: 2017Q3

REPORT INFORMATION
  Report Type: Spontaneous
  Country: US (occurrence: US)
  Receive Date: 20170221
  Receipt Date: 20170829
  Transmission Date: 20171127
  Serious: Yes (Congenital Anomaly, Other)
  Sender: FDA-Public Use
  Company Number: PHEH2017US005049

PATIENT
  Sex: Male

DRUGS (3)
  1. ZOFRAN ODT [Suspect]
     Active Substance: ONDANSETRON HYDROCHLORIDE
     Indication: FOETAL EXPOSURE DURING PREGNANCY
     Dosage: MOTHER DOSE: 04 MG, Q4H
     Route: 064
  2. ZOFRAN [Suspect]
     Active Substance: ONDANSETRON HYDROCHLORIDE
     Indication: FOETAL EXPOSURE DURING PREGNANCY
     Dosage: MOTHER DOSE: 04 MG, Q8H
     Route: 064
  3. ONDANSETRON [Suspect]
     Active Substance: ONDANSETRON
     Indication: FOETAL EXPOSURE DURING PREGNANCY
     Dosage: MOTHER DOSE: 04 MG, Q8H
     Route: 064

REACTIONS (74)
  - Congenital bladder anomaly [Unknown]
  - Limb malformation [Unknown]
  - Sepsis neonatal [Recovered/Resolved]
  - Neonatal hyponatraemia [Recovered/Resolved]
  - Pneumonia [Unknown]
  - Seizure [Unknown]
  - Hypothyroidism [Recovered/Resolved]
  - Coagulopathy [Unknown]
  - Low birth weight baby [Unknown]
  - Congenital central nervous system anomaly [Unknown]
  - Pulmonary valve incompetence [Unknown]
  - Infantile apnoea [Unknown]
  - Hyperbilirubinaemia neonatal [Recovered/Resolved]
  - Adrenal haemorrhage [Unknown]
  - Inguinal hernia [Unknown]
  - Gastrooesophageal reflux disease [Unknown]
  - Heart disease congenital [Unknown]
  - Neonatal respiratory distress syndrome [Recovered/Resolved]
  - Injury [Unknown]
  - Cardiac murmur [Unknown]
  - Haemangioma [Unknown]
  - Hypertonia [Unknown]
  - Eczema [Unknown]
  - Lung disorder [Unknown]
  - Constipation [Unknown]
  - Cryptorchism [Unknown]
  - Congenital torticollis [Unknown]
  - Premature baby [Unknown]
  - Neonatal hypotension [Recovered/Resolved]
  - Retinopathy [Unknown]
  - Thrombocytopenia neonatal [Recovered/Resolved]
  - Hypokalaemia [Recovered/Resolved]
  - Metabolic acidosis [Recovered/Resolved]
  - Poor feeding infant [Unknown]
  - Respiratory syncytial virus infection [Unknown]
  - Pyrexia [Unknown]
  - Congenital anomaly [Unknown]
  - Phimosis [Unknown]
  - Pulmonary valve stenosis [Unknown]
  - Bronchopulmonary dysplasia [Unknown]
  - Pancytopenia [Unknown]
  - Hyperphosphataemia [Recovered/Resolved]
  - Emotional distress [Unknown]
  - Pain [Unknown]
  - Upper respiratory tract infection [Unknown]
  - Gastroenteritis [Unknown]
  - Abdominal pain [Unknown]
  - Anal atresia [Unknown]
  - Adrenal insufficiency [Recovered/Resolved]
  - Placental transfusion syndrome [Unknown]
  - Fall [Unknown]
  - Kidney malformation [Unknown]
  - Atrial septal defect [Unknown]
  - Gastrointestinal malformation [Unknown]
  - Reproductive tract disorder [Unknown]
  - Hydronephrosis [Recovered/Resolved]
  - Atelectasis neonatal [Unknown]
  - Neonatal respiratory failure [Unknown]
  - Neonatal hypocalcaemia [Recovered/Resolved]
  - Otitis media acute [Unknown]
  - Decreased appetite [Unknown]
  - Head injury [Unknown]
  - Craniofacial deformity [Unknown]
  - Respiratory tract malformation [Unknown]
  - Cardiovascular disorder [Unknown]
  - Renal failure neonatal [Recovered/Resolved]
  - Enterocolitis [Unknown]
  - Foetal exposure during pregnancy [Unknown]
  - Supraventricular extrasystoles [Unknown]
  - Anaemia neonatal [Unknown]
  - Hypoalbuminaemia [Recovered/Resolved]
  - Motor developmental delay [Unknown]
  - Speech disorder [Unknown]
  - Diarrhoea [Unknown]
